FAERS Safety Report 17073595 (Version 3)
Quarter: 2020Q3

REPORT INFORMATION
  Report Type: Report from Study
  Country: US (occurrence: US)
  Receive Date: 20191126
  Receipt Date: 20200814
  Transmission Date: 20201102
  Serious: Yes (Other)
  Sender: FDA-Public Use
  Company Number: US-ACTELION-A-US2017-159381

PATIENT
  Sex: Female
  Weight: 47.62 kg

DRUGS (12)
  1. CALCIUM CARBONATE. [Concomitant]
     Active Substance: CALCIUM CARBONATE
  2. PREMARIN [Concomitant]
     Active Substance: ESTROGENS, CONJUGATED
  3. LASIX [Concomitant]
     Active Substance: FUROSEMIDE
  4. OPSUMIT [Suspect]
     Active Substance: MACITENTAN
     Dosage: 10 MG, QD
     Route: 048
  5. OPSUMIT [Suspect]
     Active Substance: MACITENTAN
     Indication: PULMONARY ARTERIAL HYPERTENSION
     Dosage: 10 MG, QD
     Route: 048
     Dates: start: 20170818
  6. ADEMPAS [Concomitant]
     Active Substance: RIOCIGUAT
  7. PROLIA [Concomitant]
     Active Substance: DENOSUMAB
  8. FOLIC ACID. [Concomitant]
     Active Substance: FOLIC ACID
  9. PLAVIX [Concomitant]
     Active Substance: CLOPIDOGREL BISULFATE
  10. CLOBETASOL [Concomitant]
     Active Substance: CLOBETASOL
  11. VITAMIN D3 [Concomitant]
     Active Substance: CHOLECALCIFEROL
  12. FAMOTIDINE. [Concomitant]
     Active Substance: FAMOTIDINE

REACTIONS (11)
  - Peripheral swelling [Not Recovered/Not Resolved]
  - Sinusitis [Not Recovered/Not Resolved]
  - Ear congestion [Unknown]
  - Nasal congestion [Unknown]
  - Finger repair operation [Unknown]
  - Product dose omission issue [Unknown]
  - Seasonal allergy [Unknown]
  - Osteomyelitis [Unknown]
  - Memory impairment [Unknown]
  - Oedema peripheral [Not Recovered/Not Resolved]
  - Condition aggravated [Unknown]
